FAERS Safety Report 8380533-6 (Version None)
Quarter: 2012Q2

REPORT INFORMATION
  Report Type: 
  Country: None (occurrence: None)
  Receive Date: 20120523
  Receipt Date: 20120521
  Transmission Date: 20120825
  Serious: Yes (Other)
  Sender: FDA-Public Use
  Company Number: US-BAYER-2011-049159

PATIENT
  Age: 18 Month

DRUGS (1)
  1. KOGENATE FS [Suspect]
     Indication: HAEMOPHILIA

REACTIONS (1)
  - FACTOR VIII INHIBITION [None]
